FAERS Safety Report 10440978 (Version 1)
Quarter: 2014Q3

REPORT INFORMATION
  Report Type: Spontaneous
  Country: NO (occurrence: NO)
  Receive Date: 20140909
  Receipt Date: 20140909
  Transmission Date: 20150326
  Serious: Yes (Other)
  Sender: FDA-Public Use
  Company Number: NO-BAYER-2014-126958

PATIENT
  Age: 21 Year
  Sex: Female

DRUGS (2)
  1. DAKTACORT [Suspect]
     Active Substance: HYDROCORTISONE\MICONAZOLE NITRATE
     Dosage: UNK
  2. CANESTEN 6 COMBI PACK [Suspect]
     Active Substance: CLOTRIMAZOLE
     Dosage: UNK

REACTIONS (3)
  - Nausea [Not Recovered/Not Resolved]
  - Abdominal pain [Not Recovered/Not Resolved]
  - Haemorrhage [Not Recovered/Not Resolved]
